FAERS Safety Report 21784943 (Version 1)
Quarter: 2022Q4

REPORT INFORMATION
  Report Type: Spontaneous
  Country: US (occurrence: None)
  Receive Date: 20221227
  Receipt Date: 20221227
  Transmission Date: 20230113
  Serious: Yes (Other)
  Sender: FDA-Public Use
  Company Number: None

PATIENT
  Age: 14 Year
  Sex: Female
  Weight: 58.97 kg

DRUGS (1)
  1. XANAX [Suspect]
     Active Substance: ALPRAZOLAM
     Indication: Dissociative identity disorder
     Dosage: FREQUENCY : DAILY;?
     Route: 018

REACTIONS (3)
  - Anxiety [None]
  - Depression [None]
  - Mental disorder [None]

NARRATIVE: CASE EVENT DATE: 20150407
